FAERS Safety Report 12782715 (Version 1)
Quarter: 2016Q3

REPORT INFORMATION
  Report Type: Spontaneous
  Country: US (occurrence: US)
  Receive Date: 20160926
  Receipt Date: 20160926
  Transmission Date: 20161109
  Serious: Yes (Other)
  Sender: FDA-Public Use
  Company Number: None

PATIENT
  Age: 50 Year
  Sex: Female
  Weight: 53.1 kg

DRUGS (11)
  1. PREMARIN [Concomitant]
     Active Substance: ESTROGENS, CONJUGATED
  2. VIT A [Concomitant]
  3. LATISSE [Suspect]
     Active Substance: BIMATOPROST
     Indication: GROWTH OF EYELASHES
     Route: 061
     Dates: start: 20160919, end: 20160922
  4. SUDAFED [Concomitant]
     Active Substance: PSEUDOEPHEDRINE HYDROCHLORIDE
  5. ALPHA LIPOIC ACID [Concomitant]
     Active Substance: .ALPHA.-LIPOIC ACID
  6. PYCOGENOL [Concomitant]
  7. BIOTIN [Concomitant]
     Active Substance: BIOTIN
  8. VITAMIN B12 [Concomitant]
     Active Substance: CYANOCOBALAMIN
  9. FISH OIL [Concomitant]
     Active Substance: FISH OIL
  10. COQ10 [Concomitant]
     Active Substance: UBIDECARENONE
  11. CRANBERRY CAPSULE [Concomitant]
     Active Substance: DIETARY SUPPLEMENT

REACTIONS (3)
  - Eyelid ptosis [None]
  - Eye irritation [None]
  - Product quality issue [None]

NARRATIVE: CASE EVENT DATE: 20160919
